FAERS Safety Report 8083046-4 (Version None)
Quarter: 2012Q1

REPORT INFORMATION
  Report Type: 
  Country: None (occurrence: None)
  Receive Date: 20120127
  Receipt Date: 20110228
  Transmission Date: 20120608
  Serious: No
  Sender: FDA-Public Use
  Company Number: US-ABBOTT-11P-163-0708578-00

PATIENT
  Sex: Male
  Weight: 90.8 kg

DRUGS (3)
  1. HUMIRA [Suspect]
     Dates: start: 20110201
  2. HUMIRA [Suspect]
     Indication: PSORIASIS
     Route: 058
     Dates: start: 20100701, end: 20100801
  3. HUMIRA [Suspect]
     Dates: start: 20100101, end: 20101220

REACTIONS (2)
  - PHARYNGITIS STREPTOCOCCAL [None]
  - STAPHYLOCOCCAL INFECTION [None]
